FAERS Safety Report 7259471-8 (Version None)
Quarter: 2011Q1

REPORT INFORMATION
  Report Type: 
  Country: None (occurrence: None)
  Receive Date: 20110129
  Receipt Date: 20100827
  Transmission Date: 20110831
  Serious: No
  Sender: FDA-Public Use
  Company Number: US-ABBOTT-10P-163-0666678-00

PATIENT
  Age: 57 Year
  Sex: Male

DRUGS (5)
  1. SINGULAIR [Concomitant]
     Indication: SINUS DISORDER
  2. FOLIC ACID [Concomitant]
     Indication: PRODUCT USED FOR UNKNOWN INDICATION
  3. METHOTREXATE [Concomitant]
     Indication: PRODUCT USED FOR UNKNOWN INDICATION
     Dosage: ON THURSDAY
  4. HUMIRA [Suspect]
     Indication: RHEUMATOID ARTHRITIS
     Dates: start: 20100701
  5. ALEVE [Concomitant]
     Indication: PAIN

REACTIONS (2)
  - VOMITING [None]
  - NAUSEA [None]
